FAERS Safety Report 6980665-0 (Version None)
Quarter: 2010Q3

REPORT INFORMATION
  Report Type: 
  Country: None (occurrence: None)
  Receive Date: 20100914
  Receipt Date: 20100910
  Transmission Date: 20110219
  Serious: Yes (Death)
  Sender: FDA-Public Use
  Company Number: CHPA2010US14460

PATIENT
  Age: 19 Year
  Sex: Female

DRUGS (8)
  1. TRANSDERM SCOP [Suspect]
     Indication: NAUSEA
     Dosage: 1.5 MG, Q72H
     Route: 062
  2. TRANSDERM SCOP [Suspect]
     Indication: VOMITING
  3. HYDROXYZINE [Concomitant]
     Indication: NAUSEA
     Dosage: 25 MG, Q6H PRN
     Route: 048
  4. DEXAMETHASONE [Concomitant]
     Dosage: 8 MG, BID
     Route: 048
  5. HYDROMORPHONE HCL [Concomitant]
     Indication: HEADACHE
     Dosage: 4 MG, PRN
     Route: 048
  6. LORAZEPAM [Concomitant]
     Indication: ANXIETY
     Dosage: 1 MG, Q6H PRN
     Route: 048
  7. ^ANTICONVULSANT THERAPY^ [Concomitant]
  8. MECLIZINE [Concomitant]
     Indication: NAUSEA

REACTIONS (2)
  - DEATH [None]
  - OFF LABEL USE [None]
